FAERS Safety Report 8663809 (Version 2)
Quarter: 2012Q4

REPORT INFORMATION
  Report Type: 
  Country: DE (occurrence: DE)
  Receive Date: 20120713
  Receipt Date: 20120910
  Transmission Date: 20130627
  Serious: Yes (Hospitalization, Other)
  Sender: FDA-Public Use
  Company Number: DE-ASTRAZENECA-2012SE46550

PATIENT
  Sex: Male

DRUGS (13)
  1. BRILIQUE [Suspect]
     Route: 048
     Dates: end: 201206
  2. ASS [Concomitant]
     Route: 048
  3. DELMUNO [Concomitant]
     Dosage: 5/5 (RAMIPRIL/FELODIPINE) 1 DF DAILY
  4. NITROLINGUAL SPRAY [Concomitant]
     Dosage: AS NEEDED/ WHEN BLOOD PRESSURE OVER 170 MMHG SYSTOLIC
     Route: 055
  5. HUMALOG [Concomitant]
     Dosage: 12-11-13 I.U.
     Route: 058
  6. LEVEMIR [Concomitant]
     Route: 058
  7. METFORMIN [Concomitant]
  8. SIMVASTATIN [Concomitant]
     Route: 048
  9. NEBIVOLOL [Concomitant]
     Route: 048
  10. RAMITANID [Concomitant]
  11. SPASMEX [Concomitant]
     Route: 048
  12. ALLOPURINOL [Concomitant]
  13. MOXONIDIN [Concomitant]

REACTIONS (4)
  - Diabetic gastroparesis [Recovering/Resolving]
  - Dyspnoea exertional [Recovering/Resolving]
  - Cold sweat [Unknown]
  - Weight decreased [Unknown]
